FAERS Safety Report 11278354 (Version 1)
Quarter: 2015Q3

REPORT INFORMATION
  Report Type: Report from Study
  Country: CA (occurrence: CA)
  Receive Date: 20150717
  Receipt Date: 20150717
  Transmission Date: 20151125
  Serious: Yes (Life-Threatening, Hospitalization)
  Sender: FDA-Public Use
  Company Number: PHHY2015CA083637

PATIENT
  Sex: Male

DRUGS (1)
  1. AFINITOR [Suspect]
     Active Substance: EVEROLIMUS
     Indication: METASTATIC RENAL CELL CARCINOMA
     Dosage: UNK
     Route: 048
     Dates: start: 20150626

REACTIONS (4)
  - General physical health deterioration [Not Recovered/Not Resolved]
  - Feeling abnormal [Unknown]
  - Pneumonia bacterial [Not Recovered/Not Resolved]
  - Malaise [Not Recovered/Not Resolved]
